FAERS Safety Report 6824876-3 (Version None)
Quarter: 2010Q3

REPORT INFORMATION
  Report Type: 
  Country: None (occurrence: None)
  Receive Date: 20100708
  Receipt Date: 20061229
  Transmission Date: 20110219
  Serious: No
  Sender: FDA-Public Use
  Company Number: US-PFIZER INC-2007001415

PATIENT
  Sex: Female
  Weight: 48.08 kg

DRUGS (2)
  1. CHANTIX [Suspect]
     Indication: SMOKING CESSATION THERAPY
     Route: 048
     Dates: start: 20061218, end: 20061228
  2. SPIRIVA [Concomitant]

REACTIONS (2)
  - ERUCTATION [None]
  - RETCHING [None]
